FAERS Safety Report 8884086 (Version 1)
Quarter: 2012Q4

REPORT INFORMATION
  Report Type: 
  Country: US (occurrence: US)
  Receive Date: 20121102
  Receipt Date: 20121102
  Transmission Date: 20130627
  Serious: No
  Sender: FDA-Public Use
  Company Number: US-ASTRAZENECA-2012SE28141

PATIENT
  Sex: Male

DRUGS (1)
  1. CRESTOR [Suspect]
     Indication: BLOOD TRIGLYCERIDES ABNORMAL
     Dosage: EVERY OTHER DAY
     Route: 048

REACTIONS (2)
  - Intentional drug misuse [Unknown]
  - High density lipoprotein decreased [Unknown]
